FAERS Safety Report 4822685-8 (Version None)
Quarter: 2005Q4

REPORT INFORMATION
  Report Type: 
  Country: None (occurrence: None)
  Receive Date: 20051108
  Receipt Date: 20051031
  Transmission Date: 20060501
  Serious: Yes (Other)
  Sender: FDA-Public Use
  Company Number: E2005-00190

PATIENT
  Age: 23 Year
  Sex: Female

DRUGS (4)
  1. MALARONE [Suspect]
     Route: 065
  2. HEPATITIS A VACCINE [Concomitant]
     Route: 065
     Dates: start: 20041219, end: 20041219
  3. TYPHIM VI [Concomitant]
     Route: 065
     Dates: start: 20041216, end: 20041216
  4. STAMARIL [Concomitant]
     Route: 065
     Dates: start: 20041216, end: 20041216

REACTIONS (3)
  - ABORTION THREATENED [None]
  - POSTPARTUM HAEMORRHAGE [None]
  - RETAINED PLACENTA OR MEMBRANES [None]
